FAERS Safety Report 7280207-9 (Version None)
Quarter: 2011Q1

REPORT INFORMATION
  Report Type: 
  Country: None (occurrence: None)
  Receive Date: 20110208
  Receipt Date: 20110131
  Transmission Date: 20110831
  Serious: Yes (Other)
  Sender: FDA-Public Use
  Company Number: US-JNJFOC-20110200392

PATIENT
  Sex: Female

DRUGS (10)
  1. TOPAMAX [Suspect]
     Indication: HEADACHE
     Route: 048
  2. HYDROCODONE BITARTRATE [Concomitant]
     Indication: HEADACHE
     Dosage: 5/25 MG
     Route: 048
  3. FLEXERIL [Concomitant]
     Indication: MUSCLE SPASMS
     Route: 048
  4. TOPAMAX [Suspect]
     Route: 048
  5. LYRICA [Concomitant]
     Indication: NEUROPATHY PERIPHERAL
     Dosage: ONCE DAILY AT NIGHT
     Route: 048
  6. VITAMINS NOS [Concomitant]
     Indication: ANAEMIA
     Route: 048
  7. CYMBALTA [Concomitant]
     Indication: NEURALGIA
     Route: 048
  8. VALIUM [Concomitant]
     Indication: MUSCLE SPASMS
     Dosage: AT BED TIME
     Route: 048
  9. LEVOTHYROXINE SODIUM [Concomitant]
     Indication: HYPOTHYROIDISM
     Route: 048
  10. FERROUS SULFATE TAB [Concomitant]
     Indication: ANAEMIA
     Route: 048

REACTIONS (4)
  - LOSS OF CONSCIOUSNESS [None]
  - MENTAL IMPAIRMENT [None]
  - CONFUSIONAL STATE [None]
  - MEMORY IMPAIRMENT [None]
